FAERS Safety Report 18534555 (Version 1)
Quarter: 2020Q4

REPORT INFORMATION
  Report Type: Spontaneous
  Country: US (occurrence: US)
  Receive Date: 20201123
  Receipt Date: 20201123
  Transmission Date: 20210114
  Serious: No
  Sender: FDA-Public Use
  Company Number: US-PFIZER INC-2019441673

PATIENT
  Age: 38 Year
  Sex: Male

DRUGS (1)
  1. LYRICA [Suspect]
     Active Substance: PREGABALIN
     Dosage: 200 MG, 3X/DAY [SIG: TAKE 1 CAPSULE BY MOUTH 3 TIMES DAILY FOR 149 DAYS]
     Route: 048

REACTIONS (2)
  - Anxiety [Unknown]
  - Depression [Unknown]
